FAERS Safety Report 9230713 (Version 2)
Quarter: 2013Q2

REPORT INFORMATION
  Report Type: Spontaneous
  Country: US (occurrence: None)
  Receive Date: 20121031
  Receipt Date: 20130107
  Transmission Date: 20140414
  Serious: No
  Sender: FDA-Public Use
  Company Number: PHEH2012US016097

PATIENT
  Age: 39 Year
  Sex: Female

DRUGS (12)
  1. GILENYA [Suspect]
     Indication: MULTIPLE SCLEROSIS
     Route: 048
     Dates: start: 20110329
  2. PROZAC (FLUOXETINE HYDROCHLORIDE) CAPSULE [Concomitant]
  3. CALTRATE + D (CALCIUM CARBONATE, COLECALCIFEROL) CHEWABLE TABLET [Concomitant]
  4. NEURONTIN (GABAPENTIN) [Concomitant]
  5. NEXIUM (ESOMEPRAZOLE MAGNESIUM) CAPSULE [Concomitant]
  6. ATIVAN (LORAZEPAM) TABLET [Concomitant]
  7. XANAX (ALPRAZOLAM) [Concomitant]
  8. EFFEXOR (VENLAFAXINE HYDROCHLORIDE) [Concomitant]
  9. GABAPENTIN (GABAPENTIN) [Concomitant]
  10. AMBIEN (ZOLPIDEM TARTRATE) [Concomitant]
  11. ULTRAM (TRAMADOL HYDROCHLORIDE) [Concomitant]
  12. LIDODERM (LIDOCAINE) [Concomitant]

REACTIONS (14)
  - Vitamin D deficiency [None]
  - Depression [None]
  - Multiple sclerosis relapse [None]
  - Neck pain [None]
  - Migraine [None]
  - Hypoaesthesia [None]
  - Paraesthesia [None]
  - Irritability [None]
  - Crying [None]
  - Feeling abnormal [None]
  - Fatigue [None]
  - Muscle spasms [None]
  - Headache [None]
  - Malaise [None]
